FAERS Safety Report 10089254 (Version 2)
Quarter: 2015Q1

REPORT INFORMATION
  Report Type: Spontaneous
  Country: JP (occurrence: JP)
  Receive Date: 20140421
  Receipt Date: 20150317
  Transmission Date: 20150720
  Serious: Yes (Death, Other)
  Sender: FDA-Public Use
  Company Number: JP-ELI_LILLY_AND_COMPANY-JP201404006228

PATIENT
  Age: 40 Year
  Sex: Male
  Weight: 64.8 kg

DRUGS (20)
  1. VANCOMYCIN [Suspect]
     Active Substance: VANCOMYCIN
     Indication: NEUTROPENIC SEPSIS
     Dosage: 2 G, UNK
     Route: 042
     Dates: start: 20131027, end: 20131027
  2. HYDROCORTONE                       /00028601/ [Suspect]
     Active Substance: HYDROCORTISONE
     Dosage: 100 MG, UNK
     Route: 042
     Dates: start: 20131102, end: 20131104
  3. TAKEPRON [Suspect]
     Active Substance: LANSOPRAZOLE
     Indication: PROPHYLAXIS AGAINST GASTROINTESTINAL ULCER
     Dosage: 30 MG, UNK
     Route: 042
     Dates: start: 20131027, end: 20131108
  4. GRAN [Suspect]
     Active Substance: FILGRASTIM
     Indication: NEUTROPENIA
     Dosage: 75 UG, UNK
     Route: 058
     Dates: start: 20131025, end: 20131108
  5. LACTEC                             /00490001/ [Concomitant]
     Indication: PRODUCT USED FOR UNKNOWN INDICATION
     Dosage: UNK
     Route: 065
     Dates: start: 20131027, end: 20131109
  6. HUMULIN R [Suspect]
     Active Substance: INSULIN HUMAN
     Indication: HYPERGLYCAEMIA
     Dosage: 50 IU, UNK
     Route: 042
     Dates: start: 20131102, end: 20131109
  7. VANCOMYCIN [Suspect]
     Active Substance: VANCOMYCIN
     Dosage: 1.5 G, UNK
     Route: 042
     Dates: start: 20131031, end: 20131107
  8. HYDROCORTONE /00028601/ [Suspect]
     Active Substance: HYDROCORTISONE
     Indication: PYREXIA
     Dosage: 200 MG, UNK
     Route: 042
     Dates: start: 20131027, end: 20131029
  9. CHLORTRIMETON [Suspect]
     Active Substance: CHLORPHENIRAMINE MALEATE
     Indication: ALLERGY PROPHYLAXIS
     Dosage: 10 MG, UNK
     Route: 065
     Dates: start: 20131022, end: 20131107
  10. HYDROCORTONE                       /00028601/ [Suspect]
     Active Substance: HYDROCORTISONE
     Dosage: 150 MG, UNK
     Route: 042
     Dates: start: 20131030, end: 20131101
  11. VANCOMYCIN [Suspect]
     Active Substance: VANCOMYCIN
     Dosage: 2.5 G, UNK
     Route: 042
     Dates: start: 20131028, end: 20131029
  12. HYDROCORTONE                       /00028601/ [Suspect]
     Active Substance: HYDROCORTISONE
     Dosage: 50 MG, UNK
     Route: 042
     Dates: start: 20131105, end: 20131109
  13. PHYSIO 70 [Concomitant]
     Indication: PRODUCT USED FOR UNKNOWN INDICATION
     Dosage: UNK
     Route: 065
     Dates: start: 20131102, end: 20131106
  14. INOTUZUMAB OZOGAMICIN [Suspect]
     Active Substance: INOTUZUMAB OZOGAMICIN
     Indication: ACUTE LYMPHOCYTIC LEUKAEMIA
     Dosage: 1.42 MG, UNK
     Route: 042
     Dates: start: 20131022, end: 20131028
  15. MEROPEN                            /01250501/ [Suspect]
     Active Substance: MEROPENEM
     Indication: NEUTROPENIC SEPSIS
     Dosage: 1 G, UNK
     Route: 042
     Dates: start: 20131027, end: 20131108
  16. NICARDIPINE [Suspect]
     Active Substance: NICARDIPINE
     Indication: HYPERTENSION
     Dosage: 30 MG, UNK
     Route: 042
     Dates: start: 20131103, end: 20131109
  17. GLYCEOL                            /00744501/ [Suspect]
     Active Substance: GLYCERIN
     Indication: BRAIN OEDEMA
  18. BFLUID [Concomitant]
     Active Substance: AMINO ACIDS\DEXTROSE\ELECTROLYTES NOS\VITAMINS
     Indication: PRODUCT USED FOR UNKNOWN INDICATION
     Dosage: UNK
     Route: 065
     Dates: start: 20131102, end: 20131106
  19. FENTANYL CITRATE. [Concomitant]
     Active Substance: FENTANYL CITRATE
     Indication: PRODUCT USED FOR UNKNOWN INDICATION
     Dosage: UNK
     Route: 065
     Dates: start: 20131027, end: 20131102
  20. VANCOMYCIN [Suspect]
     Active Substance: VANCOMYCIN
     Dosage: 2 G, UNK
     Route: 042
     Dates: start: 20131030, end: 20131030

REACTIONS (8)
  - Venoocclusive liver disease [Not Recovered/Not Resolved]
  - Stenotrophomonas test positive [None]
  - Brain abscess [None]
  - Renal impairment [None]
  - Septic embolus [None]
  - Neutropenic sepsis [Fatal]
  - Continuous haemodiafiltration [None]
  - Multi-organ failure [None]

NARRATIVE: CASE EVENT DATE: 20131105
